FAERS Safety Report 8391668-6 (Version None)
Quarter: 2012Q1

REPORT INFORMATION
  Report Type: 
  Country: None (occurrence: None)
  Receive Date: 20120323
  Receipt Date: 20111121
  Transmission Date: 20120608
  Serious: Yes (Other)
  Sender: FDA-Public Use
  Company Number: 163-21880-11031076

PATIENT
  Age: 80 Year
  Sex: Male
  Weight: 91.8 kg

DRUGS (12)
  1. AREDIA [Concomitant]
  2. ACETAMINOPHEN [Concomitant]
  3. REVLIMID [Suspect]
     Indication: MULTIPLE MYELOMA
     Dosage: SEE IMAGE
     Route: 048
     Dates: start: 20101209
  4. REVLIMID [Suspect]
     Indication: MULTIPLE MYELOMA
     Dosage: SEE IMAGE
     Route: 048
     Dates: start: 20100715
  5. REVLIMID [Suspect]
     Indication: MULTIPLE MYELOMA
     Dosage: SEE IMAGE
     Route: 048
     Dates: start: 20110303
  6. REVLIMID [Suspect]
     Indication: MULTIPLE MYELOMA
     Dosage: SEE IMAGE
     Route: 048
     Dates: start: 20090114, end: 20090601
  7. REVLIMID [Suspect]
     Indication: MULTIPLE MYELOMA
     Dosage: SEE IMAGE
     Route: 048
     Dates: start: 20101014
  8. THALOMID [Suspect]
     Indication: MULTIPLE MYELOMA
     Dosage: 25 MG, DAILY X 21 DAYS/OFF 7 DAYS, PO
     Route: 048
  9. REVLIMID [Suspect]
  10. UROXATRAL [Concomitant]
  11. SYNTHROID [Concomitant]
  12. LOMOTIL [Concomitant]

REACTIONS (10)
  - RASH [None]
  - DIARRHOEA [None]
  - BACK PAIN [None]
  - NECK PAIN [None]
  - FATIGUE [None]
  - NEUROPATHY PERIPHERAL [None]
  - OEDEMA PERIPHERAL [None]
  - CONSTIPATION [None]
  - ARTHRITIS [None]
  - FULL BLOOD COUNT DECREASED [None]
